FAERS Safety Report 8226101 (Version 3)
Quarter: 2013Q3

REPORT INFORMATION
  Report Type: Spontaneous
  Country: US (occurrence: US)
  Receive Date: 20111103
  Receipt Date: 20130808
  Transmission Date: 20140515
  Serious: Yes (Life-Threatening, Hospitalization)
  Sender: FDA-Public Use
  Company Number: US-B.I. PHARMACEUTICALS,INC./RIDGEFIELD-2011-BP-25156BP

PATIENT
  Age: 74 Year
  Sex: Female
  Weight: 75.5 kg

DRUGS (11)
  1. PRADAXA [Suspect]
     Indication: ATRIAL FIBRILLATION
     Dosage: 300 MG
     Dates: start: 20110817, end: 20110819
  2. AMLODIPINE [Concomitant]
     Indication: BLOOD PRESSURE
     Dosage: 5 MG
     Route: 048
  3. BENAZEPRIL [Concomitant]
     Indication: BLOOD PRESSURE
     Dosage: 20 MG
     Route: 048
  4. BENAZEPRIL [Concomitant]
     Indication: CARDIAC DISORDER
  5. SIMVASTATIN [Concomitant]
     Indication: BLOOD CHOLESTEROL
     Dosage: 20 MG
     Route: 048
  6. DEXILANT [Concomitant]
     Indication: GASTROOESOPHAGEAL REFLUX DISEASE
     Dosage: 60 MG
     Route: 048
  7. CARVEDILOL [Concomitant]
     Indication: BLOOD PRESSURE
     Dosage: 25 MG
     Route: 048
  8. SYNTHROID [Concomitant]
     Route: 048
  9. VITAMIN D [Concomitant]
     Dosage: 2000 U
     Route: 048
  10. FOLIC ACID [Concomitant]
     Dosage: 800 MCG
     Route: 048
  11. MULTAQ [Concomitant]
     Indication: ATRIAL FIBRILLATION
     Dosage: 800 MG
     Route: 048
     Dates: start: 20110817

REACTIONS (2)
  - Gastric haemorrhage [Recovered/Resolved]
  - Small intestinal haemorrhage [Recovered/Resolved]
